FAERS Safety Report 25410753 (Version 1)
Quarter: 2025Q2

REPORT INFORMATION
  Report Type: Spontaneous
  Country: FR (occurrence: FR)
  Receive Date: 20250609
  Receipt Date: 20250609
  Transmission Date: 20250716
  Serious: Yes (Death)
  Sender: CELLTRION
  Company Number: FR-AMGEN-FRASP2024244080

PATIENT

DRUGS (2)
  1. BEVACIZUMAB [Suspect]
     Active Substance: BEVACIZUMAB
     Indication: Glioma
     Route: 065
  2. TRAMETINIB [Concomitant]
     Active Substance: TRAMETINIB
     Route: 065

REACTIONS (3)
  - Death [Fatal]
  - Drug effective for unapproved indication [Unknown]
  - Off label use [Unknown]
